FAERS Safety Report 21446045 (Version 2)
Quarter: 2022Q4

REPORT INFORMATION
  Report Type: Spontaneous
  Country: CA (occurrence: CA)
  Receive Date: 20221012
  Receipt Date: 20221107
  Transmission Date: 20230113
  Serious: No
  Sender: FDA-Public Use
  Company Number: CA-PFIZER INC-PV202200067314

PATIENT

DRUGS (1)
  1. FRAGMIN [Suspect]
     Active Substance: DALTEPARIN SODIUM
     Dosage: 10000 IU,FRAGMIN SSOL 10000 IU/0.4 ML 0.4 ML SYR 5 EA IFC ENG

REACTIONS (2)
  - Device occlusion [Unknown]
  - Drug dose omission by device [Unknown]
